FAERS Safety Report 24664044 (Version 3)
Quarter: 2025Q1

REPORT INFORMATION
  Report Type: Report from Study
  Country: CA (occurrence: CA)
  Receive Date: 20241126
  Receipt Date: 20250224
  Transmission Date: 20250409
  Serious: Yes (Other)
  Sender: TAKEDA
  Company Number: CA-TAKEDA-2024TUS003850

PATIENT
  Age: 60 Year
  Sex: Female

DRUGS (8)
  1. VEDOLIZUMAB [Suspect]
     Active Substance: VEDOLIZUMAB
     Indication: Colitis ulcerative
  2. VEDOLIZUMAB [Suspect]
     Active Substance: VEDOLIZUMAB
  3. VEDOLIZUMAB [Suspect]
     Active Substance: VEDOLIZUMAB
  4. HYRIMOZ [Concomitant]
     Active Substance: ADALIMUMAB-ADAZ
  5. TELMISARTAN [Concomitant]
     Active Substance: TELMISARTAN
  6. ESOMEPRAZOLE [Concomitant]
     Active Substance: ESOMEPRAZOLE
  7. ESTROGEL [Concomitant]
     Active Substance: ESTRADIOL
  8. DULOXETINE [Concomitant]
     Active Substance: DULOXETINE

REACTIONS (9)
  - Haematochezia [Unknown]
  - Diarrhoea [Unknown]
  - Abdominal tenderness [Unknown]
  - Mucous stools [Unknown]
  - Frequent bowel movements [Unknown]
  - Drug ineffective [Unknown]
  - Abdominal pain [Unknown]
  - Arthralgia [Recovered/Resolved]
  - Pruritus [Unknown]

NARRATIVE: CASE EVENT DATE: 20241104
